FAERS Safety Report 10392543 (Version 1)
Quarter: 2014Q3

REPORT INFORMATION
  Report Type: Spontaneous
  Country: US (occurrence: None)
  Receive Date: 20140815
  Receipt Date: 20140815
  Transmission Date: 20150326
  Serious: Yes (Hospitalization)
  Sender: FDA-Public Use
  Company Number: 2014HINLIT0705

PATIENT
  Age: 23 Year
  Sex: Male

DRUGS (10)
  1. RISPERIDONE (RISPERIDONE) [Concomitant]
     Active Substance: RISPERIDONE
  2. QUETIAPINE (QUETIAPINE) [Suspect]
     Active Substance: QUETIAPINE
     Route: 048
  3. VALPROIC ACID (VALPROIC ACID) [Concomitant]
     Active Substance: VALPROIC ACID
  4. OLANZAPINE (OLANZAPINE) [Concomitant]
     Active Substance: OLANZAPINE
  5. LITHIUM [Suspect]
     Active Substance: LITHIUM CARBONATE
     Indication: PRODUCT USED FOR UNKNOWN INDICATION
     Route: 048
  6. BENZTROPINE (BENZTROPINE) [Concomitant]
  7. CLONAZEPAM (CLONAZEPAM) [Concomitant]
  8. ZIPRASIDONE [Suspect]
     Active Substance: ZIPRASIDONE
     Indication: PRODUCT USED FOR UNKNOWN INDICATION
     Route: 048
  9. HALOPERIDOL (HALOPERIDOL) (HALOPERIDOL) [Suspect]
     Active Substance: HALOPERIDOL
     Indication: PRODUCT USED FOR UNKNOWN INDICATION
     Route: 048
  10. PALIPERIDONE [Suspect]
     Active Substance: PALIPERIDONE
     Indication: PRODUCT USED FOR UNKNOWN INDICATION
     Route: 048

REACTIONS (1)
  - Rhabdomyolysis [None]
